FAERS Safety Report 25471668 (Version 1)
Quarter: 2025Q2

REPORT INFORMATION
  Report Type: Spontaneous
  Country: PR (occurrence: PR)
  Receive Date: 20250624
  Receipt Date: 20250624
  Transmission Date: 20250716
  Serious: No
  Sender: BIOGEN
  Company Number: PR-BIOGEN-2025BI01314969

PATIENT
  Age: 42 Year
  Sex: Female
  Weight: 93.978 kg

DRUGS (1)
  1. TYSABRI [Suspect]
     Active Substance: NATALIZUMAB
     Indication: Multiple sclerosis
     Route: 050
     Dates: start: 20250606

REACTIONS (5)
  - Back pain [Not Recovered/Not Resolved]
  - Hemiparaesthesia [Not Recovered/Not Resolved]
  - Neck pain [Not Recovered/Not Resolved]
  - Hemihypoaesthesia [Not Recovered/Not Resolved]
  - Headache [Not Recovered/Not Resolved]

NARRATIVE: CASE EVENT DATE: 20250614
